FAERS Safety Report 9015467 (Version 4)
Quarter: 2014Q2

REPORT INFORMATION
  Report Type: Spontaneous
  Country: CL (occurrence: CL)
  Receive Date: 20130116
  Receipt Date: 20140523
  Transmission Date: 20141212
  Serious: Yes (Other)
  Sender: FDA-Public Use
  Company Number: CL-PFIZER INC-2013015923

PATIENT
  Age: 60 Year
  Sex: Male

DRUGS (3)
  1. XALATAN [Suspect]
     Indication: GLAUCOMA
     Dosage: 3 DROPS, 3X/DAY
     Route: 047
     Dates: start: 2008
  2. XALATAN [Suspect]
     Dosage: 1 DROP IN EACH EYE, 3X/DAY
  3. BETAGEN [Concomitant]

REACTIONS (5)
  - Gastric cancer [Not Recovered/Not Resolved]
  - Glaucoma [Unknown]
  - Appendicitis [Unknown]
  - Vision blurred [Recovered/Resolved]
  - Off label use [Not Recovered/Not Resolved]
